FAERS Safety Report 11138597 (Version 2)
Quarter: 2015Q2

REPORT INFORMATION
  Report Type: Spontaneous
  Country: IT (occurrence: IT)
  Receive Date: 20150527
  Receipt Date: 20150601
  Transmission Date: 20150821
  Serious: Yes (Other)
  Sender: FDA-Public Use
  Company Number: IT-PFIZER INC-2015171033

PATIENT
  Age: 67 Year
  Sex: Female

DRUGS (3)
  1. AMLODIPINE/OLMESARTAN MEDOXOMIL [Suspect]
     Active Substance: AMLODIPINE MALEATE\OLMESARTAN MEDOXOMIL
     Indication: HYPERTENSION
     Dosage: 5/20 MG, DAILY
     Route: 048
  2. CARDURA [Suspect]
     Active Substance: DOXAZOSIN MESYLATE
     Indication: HYPERTENSION
     Dosage: 4 MG, 1X/DAY
     Route: 048
     Dates: end: 2015
  3. LEXOTAN [Concomitant]
     Active Substance: BROMAZEPAM
     Indication: INSOMNIA
     Dosage: 10 GTT, UNK
     Route: 048

REACTIONS (5)
  - Arrhythmia [Recovering/Resolving]
  - Chest pain [Recovering/Resolving]
  - Blood fibrinogen increased [Unknown]
  - Hyperglycaemia [Unknown]
  - Dyspnoea [Recovering/Resolving]

NARRATIVE: CASE EVENT DATE: 20150423
